FAERS Safety Report 9198130 (Version 1)
Quarter: 2013Q1

REPORT INFORMATION
  Report Type: Spontaneous
  Country: US (occurrence: US)
  Receive Date: 20130329
  Receipt Date: 20130329
  Transmission Date: 20140127
  Serious: Yes (Hospitalization, Other)
  Sender: FDA-Public Use
  Company Number: US-ELI_LILLY_AND_COMPANY-US201303006488

PATIENT
  Age: 62 None
  Sex: Female
  Weight: 58.96 kg

DRUGS (14)
  1. CYMBALTA [Suspect]
     Indication: DEPRESSION
     Dosage: UNK UNK, UNKNOWN
  2. LYRICA [Concomitant]
     Indication: NEURALGIA
     Dosage: 200 MG, BID
     Route: 048
  3. XALATAN [Concomitant]
     Indication: GLAUCOMA
     Dosage: UNK UNK, QD
     Route: 047
  4. LUMIGAN [Concomitant]
     Indication: INTRAOCULAR PRESSURE INCREASED
     Dosage: 1 DF, EACH EVENING
  5. ADVAIR [Concomitant]
     Dosage: 1 DF, BID
  6. ADVAIR [Concomitant]
     Dosage: 0.5 DF, EACH EVENING
  7. METFORMIN [Concomitant]
     Dosage: UNK UNK, UNKNOWN
  8. VYTORIN [Concomitant]
     Indication: BLOOD CHOLESTEROL INCREASED
     Dosage: UNK UNK, UNKNOWN
  9. CALCIUM CARBONATE [Concomitant]
     Indication: VITAMIN SUPPLEMENTATION
     Dosage: UNK UNK, UNKNOWN
  10. PREMARIN [Concomitant]
     Indication: HYSTERECTOMY
     Dosage: 0.625 MG, QD
     Route: 048
  11. VITAMIN D [Concomitant]
     Dosage: 2000 DF, UNKNOWN
  12. NEXIUM [Concomitant]
     Indication: GASTRIC DISORDER
     Dosage: 1 DF, EACH MORNING
     Route: 048
  13. PROMETHAZINE [Concomitant]
     Indication: NAUSEA
     Dosage: 25 MG, UNK
  14. PROMETHAZINE [Concomitant]
     Dosage: 50 MG, EVERY 6 HRS
     Route: 048

REACTIONS (6)
  - Thrombosis [Unknown]
  - White blood cell count increased [Recovered/Resolved]
  - Myocardial infarction [Recovering/Resolving]
  - Pain in extremity [Unknown]
  - Muscular weakness [Unknown]
  - Drug ineffective [Unknown]
